FAERS Safety Report 13483705 (Version 1)
Quarter: 2017Q2

REPORT INFORMATION
  Report Type: Spontaneous
  Country: IT (occurrence: IT)
  Receive Date: 20170424
  Receipt Date: 20170424
  Transmission Date: 20170830
  Serious: Yes (Hospitalization)
  Sender: FDA-Public Use
  Company Number: IT-ROCHE-1923655

PATIENT
  Age: 59 Year
  Sex: Male

DRUGS (5)
  1. VALIUM [Suspect]
     Active Substance: DIAZEPAM
     Indication: PSYCHOMOTOR HYPERACTIVITY
     Dosage: 5 MG ORAL DROPS, SOLUTION 20 ML BOTTLE
     Route: 048
     Dates: start: 20170217, end: 20170227
  2. SERENASE (ITALY) [Suspect]
     Active Substance: HALOPERIDOL
     Indication: PSYCHOMOTOR HYPERACTIVITY
     Route: 048
     Dates: start: 20170227, end: 20170227
  3. HALDOL [Concomitant]
     Active Substance: HALOPERIDOL
     Route: 048
  4. AKINETON [Suspect]
     Active Substance: BIPERIDEN HYDROCHLORIDE
     Indication: PRODUCT USED FOR UNKNOWN INDICATION
     Dosage: 4 MG PROLONGED-RELEASE TABLETS^ 50 TABLETS
     Route: 048
     Dates: start: 20170212, end: 20170227
  5. EN [Suspect]
     Active Substance: DELORAZEPAM
     Indication: AGITATION
     Dosage: 2 MG TABLETS 20 TABLETS
     Route: 048
     Dates: start: 20170227, end: 20170227

REACTIONS (3)
  - Confusional state [Unknown]
  - Balance disorder [Unknown]
  - Asthenia [Unknown]

NARRATIVE: CASE EVENT DATE: 20170227
